FAERS Safety Report 21422267 (Version 1)
Quarter: 2022Q4

REPORT INFORMATION
  Report Type: Spontaneous
  Country: US (occurrence: US)
  Receive Date: 20221007
  Receipt Date: 20221007
  Transmission Date: 20230113
  Serious: Yes (Other)
  Sender: FDA-Public Use
  Company Number: US-BAUSCH-BL-2022-020806

PATIENT
  Age: 63 Year
  Sex: Male

DRUGS (2)
  1. LUMIFY [Suspect]
     Active Substance: BRIMONIDINE TARTRATE
     Indication: Dry eye
     Dosage: ONE DROP INTO BOTH EYES AS NEEDED
     Route: 047
  2. LUMIFY [Suspect]
     Active Substance: BRIMONIDINE TARTRATE
     Indication: Product use in unapproved indication

REACTIONS (3)
  - Blindness transient [Recovered/Resolved]
  - Ocular discomfort [Unknown]
  - Product use in unapproved indication [Unknown]
